FAERS Safety Report 7331435-5 (Version None)
Quarter: 2011Q1

REPORT INFORMATION
  Report Type: 
  Country: None (occurrence: None)
  Receive Date: 20110304
  Receipt Date: 20110208
  Transmission Date: 20110831
  Serious: No
  Sender: FDA-Public Use
  Company Number: US-B.I. PHARMACEUTICALS,INC./RIDGEFIELD-2011-BP-05080BP

PATIENT
  Sex: Male

DRUGS (4)
  1. ARICEPT [Concomitant]
     Indication: DEMENTIA ALZHEIMER'S TYPE
     Dosage: 10 MG
     Route: 048
  2. PRADAXA [Suspect]
     Indication: ATRIAL FIBRILLATION
     Dosage: 300 MG
     Route: 048
     Dates: start: 20110205, end: 20110207
  3. NAMENDA [Concomitant]
     Indication: DEMENTIA ALZHEIMER'S TYPE
     Dosage: 10 MG
     Route: 048
  4. LISINOPRIL [Concomitant]
     Indication: HEART VALVE OPERATION
     Dosage: 5 MG
     Route: 048

REACTIONS (2)
  - NAUSEA [None]
  - CHEST PAIN [None]
